FAERS Safety Report 15497693 (Version 1)
Quarter: 2018Q4

REPORT INFORMATION
  Report Type: Spontaneous
  Country: US (occurrence: US)
  Receive Date: 20181005
  Receipt Date: 20181005
  Transmission Date: 20190205
  Serious: Yes (Disabling)
  Sender: FDA-Public Use
  Company Number: None

PATIENT
  Age: 57 Year
  Sex: Female
  Weight: 108 kg

DRUGS (6)
  1. WALGREENS MAXIMUM STRENGTH TRIPLE ANTIBIOTIC WITH PAIN RELIEF [Suspect]
     Active Substance: BACITRACIN ZINC\NEOMYCIN SULFATE\POLYMYXIN B SULFATE\PRAMOXINE HYDROCHLORIDE
     Indication: SCAB
     Dosage: ?          OTHER STRENGTH:JUST SAYS UNITS.;QUANTITY:.5 INCH;OTHER FREQUENCY:ONCE;?
     Route: 061
     Dates: start: 20181002, end: 20181003
  2. ANTIBIOTIC FOR STREP INFECTION [Concomitant]
  3. WALGREENS MAXIMUM STRENGTH TRIPLE ANTIBIOTIC WITH PAIN RELIEF [Suspect]
     Active Substance: BACITRACIN ZINC\NEOMYCIN SULFATE\POLYMYXIN B SULFATE\PRAMOXINE HYDROCHLORIDE
     Indication: ULCER
     Dosage: ?          OTHER STRENGTH:JUST SAYS UNITS.;QUANTITY:.5 INCH;OTHER FREQUENCY:ONCE;?
     Route: 061
     Dates: start: 20181002, end: 20181003
  4. NIGHTY USE OF CPAP [Concomitant]
  5. MULTIVITAMINS [Concomitant]
     Active Substance: VITAMINS
  6. VITAMIN C [Concomitant]
     Active Substance: ASCORBIC ACID

REACTIONS (2)
  - Unevaluable event [None]
  - Lymphangitis [None]

NARRATIVE: CASE EVENT DATE: 20181003
